FAERS Safety Report 16891188 (Version 1)
Quarter: 2019Q4

REPORT INFORMATION
  Report Type: Spontaneous
  Country: US (occurrence: US)
  Receive Date: 20191006
  Receipt Date: 20191006
  Transmission Date: 20200122
  Serious: No
  Sender: FDA-Public Use
  Company Number: None

PATIENT
  Age: 26 Year
  Sex: Female
  Weight: 90.72 kg

DRUGS (1)
  1. MIRENA [Suspect]
     Active Substance: LEVONORGESTREL
     Dates: end: 20151130

REACTIONS (7)
  - Arthralgia [None]
  - Pain [None]
  - Muscular weakness [None]
  - Migraine [None]
  - Tinnitus [None]
  - Fatigue [None]
  - Myalgia [None]
